FAERS Safety Report 10206893 (Version 1)
Quarter: 2014Q2

REPORT INFORMATION
  Report Type: Spontaneous
  Country: FR (occurrence: FR)
  Receive Date: 20140530
  Receipt Date: 20140530
  Transmission Date: 20141212
  Serious: Yes (Death, Hospitalization, Other)
  Sender: FDA-Public Use
  Company Number: FR-PFIZER INC-2014147748

PATIENT
  Age: 60 Year
  Sex: Female

DRUGS (6)
  1. EUPANTOL [Suspect]
     Dosage: UNK
     Route: 048
     Dates: start: 201403
  2. LASILIX [Suspect]
     Dosage: UNK
     Route: 048
     Dates: start: 201403
  3. KARDEGIC [Suspect]
     Dosage: UNK
     Route: 048
     Dates: start: 201403
  4. BISOPROLOL [Suspect]
     Dosage: UNK
     Route: 048
     Dates: start: 201403
  5. LOVENOX [Concomitant]
     Dosage: UNK
  6. CONTRAMAL [Concomitant]
     Dosage: UNK

REACTIONS (2)
  - Multi-organ failure [Fatal]
  - Pancreatitis acute [Unknown]
